FAERS Safety Report 24757370 (Version 4)
Quarter: 2025Q4

REPORT INFORMATION
  Report Type: Report from Study
  Country: AR (occurrence: AR)
  Receive Date: 20241220
  Receipt Date: 20251222
  Transmission Date: 20260118
  Serious: Yes (Life-Threatening, Hospitalization, Other)
  Sender: RECORDATI
  Company Number: AR-RECORDATI RARE DISEASE INC.-2024009182

PATIENT
  Sex: Female

DRUGS (4)
  1. SIGNIFOR LAR [Suspect]
     Active Substance: PASIREOTIDE PAMOATE
     Indication: Pituitary-dependent Cushing^s syndrome
     Dosage: 60 MG, EVERY FOUR WEEKS
     Route: 030
     Dates: start: 20221201, end: 202212
  2. SIGNIFOR LAR [Suspect]
     Active Substance: PASIREOTIDE PAMOATE
     Indication: Off label use
     Dosage: 40 MG, EVERY 28 DAYS
     Route: 030
     Dates: start: 202212
  3. SIGNIFOR LAR [Suspect]
     Active Substance: PASIREOTIDE PAMOATE
     Dosage: 60 MG, EVERY 28 DAYS
     Route: 030
     Dates: start: 20250120, end: 2025
  4. SIGNIFOR LAR [Suspect]
     Active Substance: PASIREOTIDE PAMOATE
     Dosage: 40 MG, EVERY 28 DAYS
     Route: 030
     Dates: start: 2025

REACTIONS (24)
  - Cardiac arrest [Not Recovered/Not Resolved]
  - Bone fissure [Not Recovered/Not Resolved]
  - Blood pressure increased [Not Recovered/Not Resolved]
  - Muscular weakness [Unknown]
  - Musculoskeletal disorder [Not Recovered/Not Resolved]
  - Blood potassium decreased [Not Recovered/Not Resolved]
  - Feeling hot [Not Recovered/Not Resolved]
  - Stress [Unknown]
  - Cortisol increased [Unknown]
  - Blood potassium decreased [Recovered/Resolved]
  - Dyspnoea [Recovered/Resolved]
  - Cortisol increased [Recovering/Resolving]
  - Stress [Not Recovered/Not Resolved]
  - Finger deformity [Unknown]
  - Gait disturbance [Not Recovered/Not Resolved]
  - Pain [Unknown]
  - Malaise [Unknown]
  - Neck pain [Unknown]
  - Blood magnesium increased [Recovered/Resolved]
  - Myalgia [Not Recovered/Not Resolved]
  - Anxiety [Not Recovered/Not Resolved]
  - Hypertension [Not Recovered/Not Resolved]
  - Headache [Unknown]
  - Inappropriate schedule of product administration [Recovered/Resolved]

NARRATIVE: CASE EVENT DATE: 20240101
